FAERS Safety Report 25936649 (Version 2)
Quarter: 2025Q4

REPORT INFORMATION
  Report Type: Spontaneous
  Country: EU (occurrence: EU)
  Receive Date: 20251017
  Receipt Date: 20251027
  Transmission Date: 20260117
  Serious: Yes (Other)
  Sender: PFIZER
  Company Number: EU-SANDOZ-SDZ2025PL072607

PATIENT
  Age: 10 Year
  Sex: Male

DRUGS (2)
  1. RITUXIMAB [Suspect]
     Active Substance: RITUXIMAB
     Indication: Interstitial lung disease
     Dosage: UNK
  2. CYTARABINE\DAUNORUBICIN [Suspect]
     Active Substance: CYTARABINE\DAUNORUBICIN
     Indication: Acute megakaryocytic leukaemia
     Dosage: TWO INDUCTION CYCLES WITH A FIXED-DOSE LIPOSOMAL FORMULATION OF DAUNORUBICIN AND CYTARABINE (123 IU/

REACTIONS (2)
  - Hepatotoxicity [Recovering/Resolving]
  - Off label use [Unknown]
